FAERS Safety Report 19259390 (Version 1)
Quarter: 2021Q2

REPORT INFORMATION
  Report Type: Report from Study
  Country: KR (occurrence: KR)
  Receive Date: 20210514
  Receipt Date: 20210514
  Transmission Date: 20210717
  Serious: Yes (Death, Hospitalization)
  Sender: FDA-Public Use
  Company Number: KR-EXELIXIS-XL18421039684

PATIENT

DRUGS (46)
  1. INCRUSE ELLIPTA [Concomitant]
     Active Substance: UMECLIDINIUM BROMIDE
     Indication: CHRONIC OBSTRUCTIVE PULMONARY DISEASE
  2. ALFOATILIN [Concomitant]
     Indication: CAROTID ARTERIOSCLEROSIS
  3. TRANSAMIN [Concomitant]
     Active Substance: TRANEXAMIC ACID
     Indication: HAEMOPTYSIS
  4. NORVASC [Concomitant]
     Active Substance: AMLODIPINE BESYLATE
     Indication: HYPERTENSION
  5. TRIDOL [Concomitant]
     Active Substance: TRAMADOL HYDROCHLORIDE
     Indication: PAIN
  6. ALBUMIN HUMAN [Concomitant]
     Active Substance: ALBUMIN HUMAN
     Indication: HYPOALBUMINAEMIA
  7. ERDOS [Concomitant]
     Active Substance: ERDOSTEINE
     Indication: PRODUCTIVE COUGH
  8. VECARON [Concomitant]
  9. ATEZOLIZUMAB. [Suspect]
     Active Substance: ATEZOLIZUMAB
     Indication: NON-SMALL CELL LUNG CANCER METASTATIC
     Dosage: 1200 MG, Q3WEEKS(DAY 1 OF EACH 21?DAY CYCLE)
     Route: 042
     Dates: start: 20210325
  10. NUCYNTA ER [Concomitant]
     Active Substance: TAPENTADOL HYDROCHLORIDE
     Indication: PALMAR-PLANTAR ERYTHRODYSAESTHESIA SYNDROME
  11. DENOGAN [Concomitant]
     Active Substance: PROPACETAMOL HYDROCHLORIDE
     Indication: PYREXIA
  12. PHOSTEN [Concomitant]
     Indication: HYPOKALAEMIA
  13. PENTOTHAL [Concomitant]
     Active Substance: THIOPENTAL SODIUM
  14. ULISTIN [Concomitant]
     Active Substance: ULINASTATIN
  15. RELVAR ELLIPTA [Concomitant]
     Active Substance: FLUTICASONE FUROATE\VILANTEROL TRIFENATATE
     Indication: CHRONIC OBSTRUCTIVE PULMONARY DISEASE
  16. RHINATHIOL [Concomitant]
     Indication: PRODUCTIVE COUGH
  17. LYRICA [Concomitant]
     Active Substance: PREGABALIN
     Indication: PARAESTHESIA
  18. KEPPRA [Concomitant]
     Active Substance: LEVETIRACETAM
     Indication: PROPHYLAXIS
  19. PETHIDINE [Concomitant]
     Active Substance: MEPERIDINE
     Indication: PAIN
  20. ATROVENT UDV [Concomitant]
     Active Substance: IPRATROPIUM BROMIDE
     Indication: PNEUMONIA
  21. LIPILOU [Concomitant]
     Indication: CAROTID ARTERIOSCLEROSIS
  22. SYNATURA [Concomitant]
     Indication: PRODUCTIVE COUGH
  23. LASIX [Concomitant]
     Active Substance: FUROSEMIDE
     Indication: OEDEMA
  24. FRESOFOL MCT [Concomitant]
  25. DUPHALAC [Concomitant]
     Active Substance: LACTULOSE
     Indication: CONSTIPATION
  26. URSA [Concomitant]
     Active Substance: URSODIOL
     Indication: HEPATIC FUNCTION ABNORMAL
  27. MOTILITONE [Concomitant]
     Active Substance: HERBALS
     Indication: DYSPEPSIA
  28. NORPINE [Concomitant]
     Indication: HYPOTENSION
  29. PHENYLEPHRINE [Concomitant]
     Active Substance: PHENYLEPHRINE HYDROCHLORIDE
     Indication: HYPOTENSION
  30. PENIRAMIN [Concomitant]
     Indication: RASH
  31. SILVERSERINE [Concomitant]
  32. GASTER [Concomitant]
     Active Substance: FAMOTIDINE
     Indication: GASTRITIS
  33. HEXAMEDIN [Concomitant]
     Indication: OROPHARYNGEAL PAIN
  34. DICLON [Concomitant]
     Active Substance: DICLOFENAC SODIUM
     Indication: PYREXIA
  35. MUCOSTEN [Concomitant]
     Indication: PRODUCTIVE COUGH
  36. HUMALOG [Concomitant]
     Active Substance: INSULIN LISPRO
     Indication: HYPERGLYCAEMIA
  37. MUCOMYST [Concomitant]
     Active Substance: ACETYLCYSTEINE
     Indication: PNEUMONIA
  38. ROSAR [Concomitant]
     Indication: HYPERTENSION
  39. VASELINE PURE [Concomitant]
     Active Substance: PETROLATUM
     Indication: DRY SKIN
  40. NASERON [Concomitant]
     Active Substance: RAMOSETRON HYDROCHLORIDE
     Indication: NAUSEA
  41. ULTIAN [Concomitant]
  42. TARIVID [Concomitant]
     Active Substance: OFLOXACIN
  43. CABOZANTINIB [Suspect]
     Active Substance: CABOZANTINIB
     Indication: NON-SMALL CELL LUNG CANCER METASTATIC
     Dosage: 40 MG, QD
     Route: 048
     Dates: start: 20210325
  44. GLUCODOWNOR SR [Concomitant]
     Indication: DIABETES MELLITUS
  45. PYRIDOXINE HYDROCHLORIDE. [Concomitant]
     Active Substance: PYRIDOXINE HYDROCHLORIDE
     Indication: DRY SKIN
  46. MACPERAN [Concomitant]
     Active Substance: METOCLOPRAMIDE HYDROCHLORIDE
     Indication: NAUSEA

REACTIONS (2)
  - Haemorrhage intracranial [Fatal]
  - Pneumonia [Fatal]

NARRATIVE: CASE EVENT DATE: 20210416
